FAERS Safety Report 9526841 (Version 2)
Quarter: 2013Q3

REPORT INFORMATION
  Report Type: Spontaneous
  Country: RU (occurrence: RU)
  Receive Date: 20130916
  Receipt Date: 20130916
  Transmission Date: 20140515
  Serious: Yes (Hospitalization)
  Sender: FDA-Public Use
  Company Number: PHHY2013RU087696

PATIENT
  Age: 50 Year
  Sex: Male

DRUGS (2)
  1. CO-EXFORGE [Suspect]
     Dosage: 1 DF (160 MG VALS, 5 MG AMLO AND 12.5 MG HCTZ), UKN
  2. CONCOR [Concomitant]

REACTIONS (1)
  - Dry eye [Recovering/Resolving]
